FAERS Safety Report 8032931-8 (Version None)
Quarter: 2012Q1

REPORT INFORMATION
  Report Type: 
  Country: None (occurrence: None)
  Receive Date: 20120110
  Receipt Date: 20120105
  Transmission Date: 20120608
  Serious: Yes (Death, Other)
  Sender: FDA-Public Use
  Company Number: US-PFIZER INC-2012003881

PATIENT
  Sex: Male

DRUGS (12)
  1. BISACODYL [Concomitant]
     Dosage: UNK
  2. FERROUS SULFATE [Concomitant]
     Dosage: UNK
  3. PLAVIX [Concomitant]
     Dosage: UNK
  4. OMEPRAZOLE [Concomitant]
     Dosage: UNK
  5. SIMVASTATIN [Concomitant]
     Dosage: UNK
  6. MEGESTROL [Concomitant]
     Dosage: UNK
  7. AMBIEN [Concomitant]
     Dosage: UNK
  8. DOCUSATE [Concomitant]
     Dosage: UNK
  9. XALATAN [Suspect]
     Indication: GLAUCOMA
     Dosage: 1 GTT IN EACH EYE, 1X/DAY
     Route: 047
     Dates: start: 20080101
  10. ACETYLSALICYLIC ACID [Concomitant]
     Dosage: UNK
  11. NITROGLYCERIN [Concomitant]
     Dosage: UNK
  12. HYDROCODONE [Concomitant]
     Dosage: UNK

REACTIONS (1)
  - DEATH [None]
